FAERS Safety Report 5264605-0 (Version None)
Quarter: 2007Q1

REPORT INFORMATION
  Report Type: 
  Country: None (occurrence: None)
  Receive Date: 20070314
  Receipt Date: 20070309
  Transmission Date: 20070707
  Serious: Yes (Hospitalization)
  Sender: FDA-Public Use
  Company Number: FR-BRISTOL-MYERS SQUIBB COMPANY-13710470

PATIENT
  Age: 52 Year
  Sex: Male

DRUGS (2)
  1. AMIKLIN INJ [Suspect]
     Indication: PROSTATITIS
     Route: 030
     Dates: start: 20061227, end: 20070207
  2. OFLOCET [Suspect]
     Indication: PROSTATITIS
     Route: 048
     Dates: start: 20061227, end: 20070207

REACTIONS (2)
  - ALANINE AMINOTRANSFERASE INCREASED [None]
  - GAMMA-GLUTAMYLTRANSFERASE INCREASED [None]
